FAERS Safety Report 7554981-8 (Version None)
Quarter: 2011Q2

REPORT INFORMATION
  Report Type: 
  Country: None (occurrence: None)
  Receive Date: 20110615
  Receipt Date: 20110615
  Transmission Date: 20111010
  Serious: No
  Sender: FDA-Public Use
  Company Number: None

PATIENT
  Age: 56 Year
  Sex: Female

DRUGS (3)
  1. PRILOSEC [Suspect]
  2. AVASTIN [Suspect]
     Indication: OVARIAN CANCER
  3. PEPCID [Suspect]

REACTIONS (6)
  - EPISTAXIS [None]
  - FEELING ABNORMAL [None]
  - IMPAIRED DRIVING ABILITY [None]
  - ABDOMINAL PAIN UPPER [None]
  - DISORIENTATION [None]
  - STOMATITIS [None]
